FAERS Safety Report 4748413-2 (Version None)
Quarter: 2005Q3

REPORT INFORMATION
  Report Type: 
  Country: None (occurrence: None)
  Receive Date: 20050818
  Receipt Date: 20050802
  Transmission Date: 20060218
  Serious: Yes (Other)
  Sender: FDA-Public Use
  Company Number: 2005-01065

PATIENT
  Age: 67 Year
  Sex: Male
  Weight: 81.6 kg

DRUGS (5)
  1. VELCADE [Suspect]
     Indication: MULTIPLE MYELOMA
     Dosage: SEE IMAGE
     Route: 040
     Dates: start: 20050104, end: 20050114
  2. VELCADE [Suspect]
     Indication: MULTIPLE MYELOMA
     Dosage: SEE IMAGE
     Route: 040
     Dates: start: 20050606, end: 20050616
  3. DEXAMETHASONE [Concomitant]
  4. PRAVACHOL [Concomitant]
  5. COLCHICINE (COLCHICINE) [Concomitant]

REACTIONS (9)
  - ABDOMINAL PAIN UPPER [None]
  - ALANINE AMINOTRANSFERASE INCREASED [None]
  - ASPARTATE AMINOTRANSFERASE INCREASED [None]
  - BLOOD LACTATE DEHYDROGENASE INCREASED [None]
  - DRUG TOXICITY [None]
  - HYPOAESTHESIA [None]
  - PYREXIA [None]
  - RHINORRHOEA [None]
  - THROMBOCYTOPENIA [None]
